FAERS Safety Report 6613123-3 (Version None)
Quarter: 2010Q1

REPORT INFORMATION
  Report Type: 
  Country: None (occurrence: None)
  Receive Date: 20100304
  Receipt Date: 20100226
  Transmission Date: 20100710
  Serious: Yes (Disabling, Other)
  Sender: FDA-Public Use
  Company Number: GB-TEVA-225848ISR

PATIENT
  Age: 81 Year
  Sex: Female
  Weight: 70 kg

DRUGS (1)
  1. TRIMETHOPRIM [Suspect]

REACTIONS (1)
  - NEUROPATHY PERIPHERAL [None]
